FAERS Safety Report 4659627-4 (Version None)
Quarter: 2005Q2

REPORT INFORMATION
  Report Type: 
  Country: None (occurrence: None)
  Receive Date: 20050411
  Receipt Date: 20041229
  Transmission Date: 20051028
  Serious: Yes (Hospitalization)
  Sender: FDA-Public Use
  Company Number: 381915

PATIENT
  Age: 47 Year
  Sex: Male
  Weight: 70.3 kg

DRUGS (11)
  1. FUZEON [Suspect]
     Dosage: 90 MG 2 PER DAY SUBCUTANEOUS
     Route: 058
  2. KALETRA [Concomitant]
  3. TRIZIVIR [Concomitant]
  4. ACYCLOVIR [Concomitant]
  5. ANDROGEL [Concomitant]
  6. ASPIRIN [Concomitant]
  7. CLONOPIN (CLONAZEPAM) [Concomitant]
  8. LIPSIN (FENOFIBRATE) [Concomitant]
  9. PANDEL (HYDROCORTISONE BUTEPRATE) [Concomitant]
  10. XANAX [Concomitant]
  11. ZENTEL (ALBENDAZOLE) [Concomitant]

REACTIONS (2)
  - PNEUMONIA CHLAMYDIAL [None]
  - PNEUMONIA STAPHYLOCOCCAL [None]
